FAERS Safety Report 25268899 (Version 2)
Quarter: 2025Q2

REPORT INFORMATION
  Report Type: Report from Study
  Country: US (occurrence: US)
  Receive Date: 20250505
  Receipt Date: 20250516
  Transmission Date: 20250717
  Serious: Yes (Hospitalization)
  Sender: AGIOS PHARMACEUTICALS
  Company Number: US-AGIOS-2501US04045

PATIENT
  Sex: Male

DRUGS (2)
  1. MITAPIVAT [Suspect]
     Active Substance: MITAPIVAT
     Indication: Pyruvate kinase deficiency anaemia
     Route: 048
     Dates: start: 20220331
  2. MITAPIVAT [Suspect]
     Active Substance: MITAPIVAT
     Route: 048
     Dates: start: 20220415

REACTIONS (3)
  - Localised infection [Not Recovered/Not Resolved]
  - Gout [Unknown]
  - Product dose omission issue [Not Recovered/Not Resolved]
